FAERS Safety Report 10081625 (Version 1)
Quarter: 2014Q2

REPORT INFORMATION
  Report Type: Spontaneous
  Country: IR (occurrence: IR)
  Receive Date: 20140416
  Receipt Date: 20140416
  Transmission Date: 20141212
  Serious: Yes (Hospitalization, Other)
  Sender: FDA-Public Use
  Company Number: IR-WATSON-2014-07213

PATIENT
  Age: 22 Year
  Sex: Female

DRUGS (1)
  1. ERGOTAMINE [Suspect]
     Indication: MIGRAINE
     Dosage: 2-4 MG (VARIABLE DOSES), DAILY
     Route: 065

REACTIONS (2)
  - Tubulointerstitial nephritis [Recovered/Resolved with Sequelae]
  - Hypertension [Not Recovered/Not Resolved]
